FAERS Safety Report 22987057 (Version 4)
Quarter: 2024Q1

REPORT INFORMATION
  Report Type: Spontaneous
  Country: US (occurrence: US)
  Receive Date: 20230926
  Receipt Date: 20240329
  Transmission Date: 20240410
  Serious: No
  Sender: FDA-Public Use
  Company Number: US-BRISTOL-MYERS SQUIBB COMPANY-2023-136439

PATIENT
  Age: 76 Year
  Sex: Female

DRUGS (3)
  1. SPRYCEL [Suspect]
     Active Substance: DASATINIB
     Indication: Chronic myeloid leukaemia
     Route: 048
     Dates: start: 202309
  2. SPRYCEL [Suspect]
     Active Substance: DASATINIB
     Route: 048
     Dates: start: 202309
  3. PRILOSEC [Suspect]
     Active Substance: OMEPRAZOLE MAGNESIUM
     Indication: Product used for unknown indication

REACTIONS (8)
  - Fatigue [Recovering/Resolving]
  - Dyspepsia [Unknown]
  - Nausea [Not Recovered/Not Resolved]
  - General physical condition abnormal [Unknown]
  - Dysphagia [Unknown]
  - Anaemia [Unknown]
  - Pain [Unknown]
  - Stomatitis [Unknown]
